FAERS Safety Report 9710959 (Version 2)
Quarter: 2013Q4

REPORT INFORMATION
  Report Type: Spontaneous
  Country: US (occurrence: US)
  Receive Date: 20131126
  Receipt Date: 20131126
  Transmission Date: 20140711
  Serious: No
  Sender: FDA-Public Use
  Company Number: US-BRISTOL-MYERS SQUIBB COMPANY-19073022

PATIENT
  Age: 73 Year
  Sex: Female
  Weight: 95.24 kg

DRUGS (1)
  1. BYETTA [Suspect]
     Indication: TYPE 2 DIABETES MELLITUS
     Dosage: DOSE:10MCG QD X 7 DAYS (CURRENT DOSE)
     Route: 058
     Dates: start: 201305

REACTIONS (5)
  - Nausea [Recovered/Resolved]
  - Lethargy [Recovered/Resolved]
  - Somnolence [Unknown]
  - Blood glucose increased [Unknown]
  - Abdominal discomfort [Not Recovered/Not Resolved]
